FAERS Safety Report 13515986 (Version 1)
Quarter: 2017Q2

REPORT INFORMATION
  Report Type: Report from Study
  Country: KR (occurrence: KR)
  Receive Date: 20170505
  Receipt Date: 20170505
  Transmission Date: 20170830
  Serious: Yes (Hospitalization, Other)
  Sender: FDA-Public Use
  Company Number: KR-BAXTER-2017BAX008478

PATIENT
  Age: 43 Year
  Sex: Female
  Weight: 41 kg

DRUGS (4)
  1. DIANEAL PD-2 1.5% [Suspect]
     Active Substance: CALCIUM CHLORIDE\DEXTROSE\MAGNESIUM CHLORIDE\SODIUM CHLORIDE\SODIUM LACTATE
     Indication: PERITONEAL DIALYSIS
     Route: 033
     Dates: start: 20170313, end: 20170407
  2. PHYSIONEAL 1.5% [Suspect]
     Active Substance: CALCIUM CHLORIDE\DEXTROSE\MAGNESIUM CHLORIDE\SODIUM CHLORIDE SOLUTION
     Indication: PERITONEAL DIALYSIS
  3. DIANEAL PD-2 1.5% [Suspect]
     Active Substance: CALCIUM CHLORIDE\DEXTROSE\MAGNESIUM CHLORIDE\SODIUM CHLORIDE\SODIUM LACTATE
     Indication: END STAGE RENAL DISEASE
     Dosage: 13 CYCLES FOR A DAY
     Route: 033
     Dates: end: 20170407
  4. PHYSIONEAL 1.5% [Suspect]
     Active Substance: CALCIUM CHLORIDE\DEXTROSE\MAGNESIUM CHLORIDE\SODIUM CHLORIDE SOLUTION
     Indication: END STAGE RENAL DISEASE
     Dosage: TIDAL 90%
     Route: 033
     Dates: start: 20160808, end: 20170313

REACTIONS (5)
  - Drug dose omission [Recovered/Resolved]
  - Asthenia [Not Recovered/Not Resolved]
  - Disease recurrence [Recovered/Resolved]
  - Dehydration [Unknown]
  - Alkalosis [Recovered/Resolved]

NARRATIVE: CASE EVENT DATE: 20170220
